FAERS Safety Report 5924769-X (Version None)
Quarter: 2008Q4

REPORT INFORMATION
  Report Type: 
  Country: None (occurrence: None)
  Receive Date: 20081017
  Receipt Date: 20081007
  Transmission Date: 20090506
  Serious: Yes (Death, Hospitalization)
  Sender: FDA-Public Use
  Company Number: SPV1-2008-02042

PATIENT
  Age: 65 Year
  Sex: Male

DRUGS (1)
  1. 405 (LANTHANUM CARBONATE)(405 LANTHANUM CARBONATE) CHEWABLE TABLET [Suspect]
     Indication: HYPERPHOSPHATAEMIA
     Dosage: 3000 MG,
     Dates: start: 20061010

REACTIONS (4)
  - CHEST PAIN [None]
  - DIALYSIS [None]
  - DYSPNOEA [None]
  - HEPATIC NEOPLASM MALIGNANT [None]
